FAERS Safety Report 6303643-3 (Version None)
Quarter: 2009Q3

REPORT INFORMATION
  Report Type: 
  Country: None (occurrence: None)
  Receive Date: 20090807
  Receipt Date: 20090807
  Transmission Date: 20100115
  Serious: Yes (Life-Threatening, Hospitalization)
  Sender: FDA-Public Use
  Company Number: None

PATIENT
  Sex: Male
  Weight: 92.8513 kg

DRUGS (2)
  1. SEPTRA DS [Suspect]
     Indication: STAPHYLOCOCCAL INFECTION
     Dosage: 2 DS TABLETS. BID, PO
     Route: 048
     Dates: start: 20090801, end: 20090802
  2. SEPTRA DS [Suspect]
     Indication: WOUND INFECTION
     Dosage: 2 DS TABLETS. BID, PO
     Route: 048
     Dates: start: 20090801, end: 20090802

REACTIONS (2)
  - HAEMOLYSIS [None]
  - THROMBOCYTOPENIA [None]
